FAERS Safety Report 6143853-1 (Version None)
Quarter: 2009Q2

REPORT INFORMATION
  Report Type: 
  Country: None (occurrence: None)
  Receive Date: 20090403
  Receipt Date: 20090326
  Transmission Date: 20091009
  Serious: Yes (Death)
  Sender: FDA-Public Use
  Company Number: KR-MERCK-0903USA05394

PATIENT
  Age: 59 Year
  Sex: Female

DRUGS (4)
  1. DECADRON [Suspect]
     Indication: LUPUS-LIKE SYNDROME
     Route: 048
  2. DECADRON [Suspect]
     Indication: MYCOBACTERIAL INFECTION
     Route: 048
  3. PREDNISOLONE [Concomitant]
     Route: 065
  4. AZATHIOPRINE [Concomitant]
     Route: 065

REACTIONS (3)
  - DRUG INEFFECTIVE [None]
  - LYMPHOHISTIOCYTOSIS [None]
  - LYMPHOMA [None]
